FAERS Safety Report 16432705 (Version 21)
Quarter: 2022Q4

REPORT INFORMATION
  Report Type: Report from Study
  Country: JP (occurrence: JP)
  Receive Date: 20190614
  Receipt Date: 20221222
  Transmission Date: 20230112
  Serious: Yes (Hospitalization, Other)
  Sender: FDA-Public Use
  Company Number: JP-ONO-2019JP020283

PATIENT
  Age: 60 Year
  Sex: Female
  Weight: 59.3 kg

DRUGS (28)
  1. ETELCALCETIDE [Suspect]
     Active Substance: ETELCALCETIDE
     Indication: Hyperparathyroidism secondary
     Dosage: 5 MILLIGRAM, Q56H
     Route: 010
     Dates: start: 20181001, end: 20181017
  2. ETELCALCETIDE [Suspect]
     Active Substance: ETELCALCETIDE
     Dosage: 10 MILLIGRAM, Q56H
     Route: 010
     Dates: start: 20181019
  3. DARBEPOETIN ALFA [Concomitant]
     Active Substance: DARBEPOETIN ALFA
     Dosage: 5 MICROGRAM, QWK
     Route: 065
     Dates: end: 20190819
  4. CINACALCET HYDROCHLORIDE [Concomitant]
     Active Substance: CINACALCET HYDROCHLORIDE
     Dosage: 25 MILLIGRAM, QD
     Route: 048
     Dates: start: 20180813, end: 20180930
  5. EPOETIN ALFA [Concomitant]
     Active Substance: ERYTHROPOIETIN
     Dosage: 750 INTERNATIONAL UNIT, QWK
     Route: 065
     Dates: start: 20210927, end: 20211101
  6. EPOETIN ALFA [Concomitant]
     Active Substance: ERYTHROPOIETIN
     Dosage: 1500 INTERNATIONAL UNIT, QWK
     Route: 065
     Dates: start: 20211106, end: 20211222
  7. EPOETIN ALFA [Concomitant]
     Active Substance: ERYTHROPOIETIN
     Dosage: 3000 INTERNATIONAL UNIT, QWK
     Route: 065
     Dates: start: 20211224, end: 20220121
  8. EPOETIN ALFA [Concomitant]
     Active Substance: ERYTHROPOIETIN
     Dosage: 2250 INTERNATIONAL UNIT, QWK
     Route: 065
     Dates: start: 20220124, end: 20220304
  9. EPOETIN ALFA [Concomitant]
     Active Substance: ERYTHROPOIETIN
     Dosage: 3000 INTERNATIONAL UNIT, QWK
     Route: 065
     Dates: start: 20220307, end: 20221021
  10. EPOETIN ALFA [Concomitant]
     Active Substance: ERYTHROPOIETIN
     Dosage: 4500 INTERNATIONAL UNIT, QWK
     Route: 065
     Dates: start: 20221024
  11. DARBEPOETIN ALFA [Concomitant]
     Active Substance: DARBEPOETIN ALFA
     Dosage: 5 MICROGRAM, QWK
     Route: 065
     Dates: start: 20190826, end: 20210920
  12. Calfina [Concomitant]
     Dosage: 0.25 MICROGRAM
     Route: 048
     Dates: end: 20180730
  13. Calfina [Concomitant]
     Dosage: 0.5 MICROGRAM, QD
     Route: 048
     Dates: start: 20180731, end: 20200524
  14. ROCALTROL [Concomitant]
     Active Substance: CALCITRIOL
     Dosage: 0.5 MICROGRAM
     Route: 042
     Dates: end: 20180813
  15. ROCALTROL [Concomitant]
     Active Substance: CALCITRIOL
     Dosage: 0.5 MICROGRAM, QWK
     Route: 042
     Dates: start: 20180820, end: 20181015
  16. ROCALTROL [Concomitant]
     Active Substance: CALCITRIOL
     Dosage: 0.5 MICROGRAM, Q56H
     Route: 042
     Dates: start: 20181019, end: 20181121
  17. ROCALTROL [Concomitant]
     Active Substance: CALCITRIOL
     Dosage: 1 MICROGRAM, Q56H
     Route: 042
     Dates: start: 20181123, end: 20190204
  18. ROCALTROL [Concomitant]
     Active Substance: CALCITRIOL
     Dosage: 0.5 MICROGRAM, Q56H
     Route: 042
     Dates: start: 20190206, end: 20210623
  19. ROCALTROL [Concomitant]
     Active Substance: CALCITRIOL
     Dosage: 0.5 MICROGRAM, QWK
     Route: 042
     Dates: start: 20210702
  20. P-tol [Concomitant]
     Dosage: 500 MILLIGRAM, QD, STOP DATE: 20-JAN-2019
     Route: 048
  21. P-tol [Concomitant]
     Dosage: 500 MILLIGRAM, QD
     Route: 048
     Dates: start: 20190121, end: 20190217
  22. P-tol [Concomitant]
     Dosage: 250 MILLIGRAM, QD
     Route: 048
     Dates: start: 20190218, end: 20191004
  23. P-tol [Concomitant]
     Dosage: 750 MILLIGRAM, QD
     Route: 048
     Dates: start: 20191005
  24. LANTHANUM CARBONATE [Concomitant]
     Active Substance: LANTHANUM CARBONATE
     Dosage: 1000 MILLIGRAM, QD
     Route: 048
     Dates: start: 20190806
  25. FOSRENOL [Concomitant]
     Active Substance: LANTHANUM CARBONATE
     Dosage: 1000 MILLIGRAM, QD
     Route: 048
     Dates: end: 20190805
  26. ALFACALCIDOL [Concomitant]
     Active Substance: ALFACALCIDOL
     Dosage: 0.5 MICROGRAM, QD
     Route: 065
     Dates: start: 20200525
  27. BIXALOMER [Concomitant]
     Active Substance: BIXALOMER
     Dosage: 750 MILLIGRAM, QD
     Route: 065
     Dates: start: 20210310, end: 20210407
  28. CALCIUM CARBONATE [Concomitant]
     Active Substance: CALCIUM CARBONATE
     Dosage: 3000 MILLIGRAM, QD
     Route: 065
     Dates: start: 20220803, end: 20220809

REACTIONS (24)
  - Contrast media allergy [Recovered/Resolved]
  - Shunt stenosis [Recovered/Resolved]
  - Vitreous detachment [Not Recovered/Not Resolved]
  - Arrhythmia [Recovered/Resolved]
  - Arthralgia [Not Recovered/Not Resolved]
  - Contusion [Recovered/Resolved]
  - Shunt stenosis [Recovered/Resolved]
  - Large intestine polyp [Not Recovered/Not Resolved]
  - Shunt stenosis [Recovered/Resolved]
  - Musculoskeletal pain [Recovered/Resolved]
  - Herpes zoster [Recovered/Resolved]
  - Shunt stenosis [Recovered/Resolved]
  - Shunt stenosis [Recovered/Resolved]
  - Rhinitis allergic [Recovered/Resolved]
  - Conjunctivitis allergic [Recovered/Resolved]
  - Shunt stenosis [Recovered/Resolved]
  - Hyperlipidaemia [Not Recovered/Not Resolved]
  - Rhinitis allergic [Recovered/Resolved]
  - Gastrooesophageal reflux disease [Not Recovered/Not Resolved]
  - Eczema asteatotic [Recovered/Resolved]
  - Rhinitis allergic [Recovered/Resolved]
  - Constipation [Not Recovered/Not Resolved]
  - Vomiting [Recovered/Resolved]
  - Gingivitis [Recovered/Resolved]

NARRATIVE: CASE EVENT DATE: 20181003
